FAERS Safety Report 25554834 (Version 1)
Quarter: 2025Q3

REPORT INFORMATION
  Report Type: Report from Study
  Country: CA (occurrence: CA)
  Receive Date: 20250715
  Receipt Date: 20250715
  Transmission Date: 20251020
  Serious: Yes (Other)
  Sender: TEVA
  Company Number: CA-TEVA-VS-3350524

PATIENT

DRUGS (2)
  1. TERIPARATIDE [Suspect]
     Active Substance: TERIPARATIDE
     Indication: Product used for unknown indication
     Route: 058
  2. TERIPARATIDE [Suspect]
     Active Substance: TERIPARATIDE
     Route: 058

REACTIONS (5)
  - Multiple fractures [Unknown]
  - Blood cholesterol increased [Unknown]
  - Blood calcium increased [Unknown]
  - Adverse event [Unknown]
  - Off label use [Unknown]
